FAERS Safety Report 4307606-9 (Version None)
Quarter: 2004Q1

REPORT INFORMATION
  Report Type: 
  Country: None (occurrence: None)
  Receive Date: 20040227
  Receipt Date: 20040227
  Transmission Date: 20041129
  Serious: Yes (Disabling)
  Sender: FDA-Public Use
  Company Number: None

PATIENT
  Age: 78 Year
  Sex: Male
  Weight: 108.8633 kg

DRUGS (2)
  1. DURAGESIC [Suspect]
     Dates: start: 20040211, end: 20040221
  2. MORPHINE [Suspect]

REACTIONS (6)
  - ABNORMAL BEHAVIOUR [None]
  - ANXIETY [None]
  - DEPRESSED LEVEL OF CONSCIOUSNESS [None]
  - INSOMNIA [None]
  - PAIN [None]
  - PSYCHOMOTOR HYPERACTIVITY [None]
